FAERS Safety Report 5881024-4 (Version None)
Quarter: 2008Q3

REPORT INFORMATION
  Report Type: 
  Country: None (occurrence: None)
  Receive Date: 20080912
  Receipt Date: 20080616
  Transmission Date: 20090109
  Serious: No
  Sender: FDA-Public Use
  Company Number: US-ABBOTT-08P-163-0457873-00

PATIENT
  Sex: Female
  Weight: 67.646 kg

DRUGS (3)
  1. HUMIRA [Suspect]
     Indication: CROHN'S DISEASE
     Route: 058
     Dates: start: 20080401
  2. ESTROGENS CONJUGATED [Concomitant]
     Indication: OESTROGEN THERAPY
     Route: 048
     Dates: start: 19991201
  3. FLUTICASONE PROPIONATE [Concomitant]
     Indication: ASTHMA
     Route: 055
     Dates: start: 20040101

REACTIONS (1)
  - ACCIDENTAL EXPOSURE [None]
